FAERS Safety Report 6588055 (Version 15)
Quarter: 2014Q1

REPORT INFORMATION
  Report Type: Spontaneous
  Country: US (occurrence: US)
  Receive Date: 20080319
  Receipt Date: 20140103
  Transmission Date: 20141002
  Serious: Yes (Other)
  Sender: FDA-Public Use
  Company Number: PHEH2008US02671

PATIENT
  Age: 47 Year
  Sex: Male
  Weight: 81.63 kg

DRUGS (71)
  1. ZOMETA [Suspect]
     Indication: PROSTATE CANCER
     Dosage: 4 MG, Q5W
     Route: 065
     Dates: start: 20030106, end: 20060523
  2. CHEMOTHERAPEUTICS NOS [Concomitant]
     Dates: start: 200210
  3. DEXAMETHASONE [Concomitant]
  4. RADIATION THERAPY [Concomitant]
     Indication: ASTHENIA
     Dates: start: 2002
  5. RADIATION THERAPY [Concomitant]
     Indication: HYPOAESTHESIA
     Dates: start: 20090922, end: 20091103
  6. RADIATION THERAPY [Concomitant]
     Dates: start: 20091104, end: 20091120
  7. FLOMAX ^BOEHRINGER INGELHEIM^ [Concomitant]
  8. LOTREL [Concomitant]
  9. ZOLADEX [Concomitant]
  10. PAXIL [Concomitant]
  11. DYAZIDE [Concomitant]
  12. EMCYT [Concomitant]
  13. CRESTOR [Concomitant]
  14. LORAZEPAM [Concomitant]
  15. TRIAMTERENE AND HYDROCHLOROTHIAZID ^HARRIS^ [Concomitant]
  16. ATIVAN [Concomitant]
  17. TAXOL [Concomitant]
  18. XANAX [Concomitant]
     Dosage: 0.25 MG, TID
     Route: 048
  19. HYDROCODONE W/ACETAMINOPHEN [Concomitant]
     Dosage: 7.5 MG, PRN
     Route: 048
     Dates: start: 20090513
  20. GOSERELIN [Concomitant]
  21. CIMETIDINE [Concomitant]
     Route: 048
  22. ZOFRAN [Concomitant]
     Dosage: 32 MG, QD
     Route: 041
  23. BENADRYL ^ACHE^ [Concomitant]
     Dosage: 25 MG, QD
     Route: 048
  24. PACLITAXEL [Concomitant]
  25. PHENERGAN ^AVENTIS PHARMA^ [Concomitant]
     Dosage: 25 MG, PRN
     Route: 048
  26. OXYCONTIN [Concomitant]
     Dosage: 40 MG, PRN
     Route: 048
  27. VALIUM [Concomitant]
     Dosage: 5 MG, PRN
  28. OXYIR [Concomitant]
     Dosage: 5 MG, PRN
     Route: 048
  29. LOMOTIL [Concomitant]
     Route: 048
  30. VIAGRA [Concomitant]
     Route: 048
  31. CEPHALEXIN [Concomitant]
     Route: 048
     Dates: start: 20050912
  32. DARVOCET-N [Concomitant]
     Dosage: 100 MG, PRN
     Route: 048
     Dates: start: 20050912
  33. CEFAZOLIN [Concomitant]
  34. CHLORHEXIDINE [Concomitant]
  35. EPHEDRINE SULFATE [Concomitant]
  36. ESMOLOL [Concomitant]
  37. ETOMIDATE [Concomitant]
  38. FENTANYL [Concomitant]
  39. METOCLOPRAMIDE [Concomitant]
  40. MIDAZOLAM [Concomitant]
  41. MORPHINE [Concomitant]
  42. NEOSTIGMINE [Concomitant]
  43. ONDANSETRON [Concomitant]
  44. PROPOFOL [Concomitant]
  45. SUCCINYLCHOLINE CHLORIDE [Concomitant]
  46. THROMBIN [Concomitant]
  47. ESTRAMUSTINE [Concomitant]
  48. KETOROLAC [Concomitant]
  49. MEGACE [Concomitant]
  50. CASODEX [Concomitant]
  51. CELEXA [Concomitant]
  52. PROVIGIL [Concomitant]
  53. VITAMIN D [Concomitant]
  54. TRAMADOL HYDROCHLORIDE [Concomitant]
  55. PROMETHAZINE HYDROCHLORIDE [Concomitant]
  56. KYTRIL [Concomitant]
  57. PEPCID [Concomitant]
  58. LEVAQUIN [Concomitant]
  59. ANZEMET [Concomitant]
  60. LORCET [Concomitant]
  61. IBUPROFEN [Concomitant]
     Indication: PAIN
  62. NITROGEN MUSTARD [Concomitant]
  63. MULTIVITAMIN ^LAPPE^ [Concomitant]
  64. POTASSIUM CHLORIDE [Concomitant]
     Route: 042
  65. VICODIN [Concomitant]
  66. PERIDEX [Concomitant]
  67. AMOXIL ^AYERST LAB^ [Concomitant]
     Dosage: 10 ML, TID
  68. TAXOTERE [Concomitant]
     Indication: PROSTATE CANCER
  69. CELEBREX [Concomitant]
     Dosage: 100 MG, BID
     Route: 048
  70. BICALUTAMIDE [Concomitant]
     Indication: PROSTATE CANCER
  71. FLOMAX ^BOEHRINGER INGELHEIM^ [Concomitant]

REACTIONS (74)
  - Depression [Unknown]
  - Cervical radiculopathy [Unknown]
  - Gynaecomastia [Unknown]
  - Urinary tract infection [Unknown]
  - Dysuria [Recovering/Resolving]
  - Pyrexia [Unknown]
  - Pollakiuria [Unknown]
  - Chills [Unknown]
  - Erectile dysfunction [Unknown]
  - Osteonecrosis of jaw [Recovered/Resolved]
  - Injury [Unknown]
  - Pain [Unknown]
  - Anxiety [Unknown]
  - Decreased interest [Unknown]
  - Bone disorder [Unknown]
  - Infection [Unknown]
  - Impaired healing [Unknown]
  - Pain in jaw [Unknown]
  - Dental caries [Unknown]
  - Gingival bleeding [Unknown]
  - Oral cavity fistula [Unknown]
  - Gingival abscess [Unknown]
  - Purulent discharge [Unknown]
  - Gingival oedema [Unknown]
  - Gingival erythema [Unknown]
  - Gingival pain [Unknown]
  - Mucosal inflammation [Unknown]
  - Rib fracture [Unknown]
  - Osteosarcoma metastatic [Unknown]
  - Chest pain [Unknown]
  - Nutritional condition abnormal [Unknown]
  - Insomnia [Unknown]
  - Fatigue [Unknown]
  - Nausea [Unknown]
  - Asthenia [Unknown]
  - Hot flush [Unknown]
  - Paraesthesia [Unknown]
  - Hypoaesthesia [Unknown]
  - Vomiting [Unknown]
  - Musculoskeletal pain [Unknown]
  - Lymphadenopathy mediastinal [Unknown]
  - Neuropathy peripheral [Unknown]
  - Neck pain [Unknown]
  - Spinal osteoarthritis [Unknown]
  - Spinal column stenosis [Unknown]
  - Intervertebral disc protrusion [Unknown]
  - Muscular weakness [Unknown]
  - Micturition urgency [Recovering/Resolving]
  - Urine flow decreased [Recovering/Resolving]
  - Back pain [Unknown]
  - Syncope [Recovering/Resolving]
  - Alopecia [Unknown]
  - Osteoarthritis [Unknown]
  - Cardiac murmur [Unknown]
  - Pulmonary mass [Unknown]
  - Prostate cancer recurrent [Unknown]
  - Malignant neoplasm progression [Unknown]
  - Nasopharyngitis [Unknown]
  - Proctalgia [Unknown]
  - Tooth abscess [Unknown]
  - Red blood cell count decreased [Unknown]
  - Haemoglobin decreased [Unknown]
  - Haematocrit decreased [Unknown]
  - Blood sodium decreased [Unknown]
  - Blood chloride decreased [Unknown]
  - Gamma-glutamyltransferase increased [Unknown]
  - Alanine aminotransferase increased [Unknown]
  - Metastases to central nervous system [Unknown]
  - Metastases to liver [Unknown]
  - Toothache [Unknown]
  - Gingival swelling [Unknown]
  - Osteomyelitis [Unknown]
  - Tooth fracture [Unknown]
  - Pelvic neoplasm [Unknown]
